FAERS Safety Report 10090045 (Version 1)
Quarter: 2014Q2

REPORT INFORMATION
  Report Type: Spontaneous
  Country: US (occurrence: US)
  Receive Date: 20140421
  Receipt Date: 20140421
  Transmission Date: 20141212
  Serious: Yes (Hospitalization, Other)
  Sender: FDA-Public Use
  Company Number: US-TEVA-476141USA

PATIENT
  Age: 32 Year
  Sex: Male

DRUGS (1)
  1. HYDROCHLOROTHIAZIDE W/LOSARTAN [Suspect]
     Indication: HYPERTENSION
     Dosage: LOSARTAN 50MG/HYDROCHLOROTHIAZIDE 12.5MG ONCE DAILY
     Route: 065

REACTIONS (1)
  - Pemphigoid [Recovered/Resolved]
